FAERS Safety Report 9275863 (Version 2)
Quarter: 2013Q3

REPORT INFORMATION
  Report Type: Spontaneous
  Country: AU (occurrence: AU)
  Receive Date: 20130507
  Receipt Date: 20130701
  Transmission Date: 20140515
  Serious: Yes (Other)
  Sender: FDA-Public Use
  Company Number: AU-009507513-1305AUS000723

PATIENT
  Age: 58 Year
  Sex: Male
  Weight: 115 kg

DRUGS (8)
  1. JANUVIA [Suspect]
     Indication: DIABETES MELLITUS
     Dosage: 100 MG DAILY
     Route: 048
     Dates: start: 20130418
  2. ARAVA [Concomitant]
     Indication: RHEUMATOID ARTHRITIS
     Dosage: 20 MG DAILY
     Route: 048
     Dates: start: 20110915
  3. ASMOL [Concomitant]
     Dosage: 1-2QH PRN
     Route: 055
     Dates: start: 20110515
  4. COVERSYL PLUS (INDAPAMIDE (+) PERINDOPRIL ARGININE) [Concomitant]
     Dosage: 1
     Route: 048
     Dates: start: 201105
  5. DIAFORMIN XR 500 MG [Concomitant]
     Dosage: 3 N
     Route: 048
     Dates: start: 20110815
  6. FLIXOTIDE [Concomitant]
     Dosage: 1-2 BD
     Route: 055
     Dates: start: 20110815
  7. NEXIUM [Concomitant]
     Dosage: 1 MORE
     Route: 048
     Dates: start: 20110515
  8. PREDNISONE [Concomitant]
     Dosage: FOR FLARE UPS

REACTIONS (1)
  - Palindromic rheumatism [Not Recovered/Not Resolved]
